FAERS Safety Report 11761184 (Version 1)
Quarter: 2015Q4

REPORT INFORMATION
  Report Type: Spontaneous
  Country: MX (occurrence: MX)
  Receive Date: 20151120
  Receipt Date: 20151120
  Transmission Date: 20160304
  Serious: Yes (Other)
  Sender: FDA-Public Use
  Company Number: MX-SA-2015SA163243

PATIENT
  Sex: Female
  Weight: 66 kg

DRUGS (1)
  1. ENOXAPARIN SODIUM. [Suspect]
     Active Substance: ENOXAPARIN SODIUM
     Indication: THROMBOSIS PROPHYLAXIS
     Dosage: DOSE: 1 AMPOULE ?DURATION: 5 MONTHS APPROX.
     Route: 058
     Dates: start: 201505

REACTIONS (2)
  - Abortion [Unknown]
  - Exposure during pregnancy [Unknown]
